FAERS Safety Report 13973132 (Version 1)
Quarter: 2017Q3

REPORT INFORMATION
  Report Type: Spontaneous
  Country: US (occurrence: None)
  Receive Date: 20170914
  Receipt Date: 20170914
  Transmission Date: 20171128
  Serious: No
  Sender: FDA-Public Use
  Company Number: None

PATIENT
  Age: 70 Year
  Sex: Female

DRUGS (27)
  1. PANTOPRAZOLE [Concomitant]
     Active Substance: PANTOPRAZOLE
  2. AMLODIPINE [Concomitant]
     Active Substance: AMLODIPINE BESYLATE
  3. TERCONAZOLE VAG CREAM [Concomitant]
  4. SUCRALFATE. [Concomitant]
     Active Substance: SUCRALFATE
  5. ALBUTEROL INHL NEB SOLN [Concomitant]
  6. HUMULIN N KWIKPEN [Concomitant]
  7. BACLOFEN. [Concomitant]
     Active Substance: BACLOFEN
  8. FUROSEMIDE. [Concomitant]
     Active Substance: FUROSEMIDE
  9. ESTRING [Concomitant]
     Active Substance: ESTRADIOL
  10. LIDODERM [Concomitant]
     Active Substance: LIDOCAINE
  11. VENTOLIN HFA [Concomitant]
     Active Substance: ALBUTEROL SULFATE
  12. HYDRALAZINE [Concomitant]
     Active Substance: HYDRALAZINE HYDROCHLORIDE
  13. OXYBUTYNIN [Concomitant]
     Active Substance: OXYBUTYNIN
  14. QVAR [Concomitant]
     Active Substance: BECLOMETHASONE DIPROPIONATE
  15. NORCO [Concomitant]
     Active Substance: ACETAMINOPHEN\HYDROCODONE BITARTRATE
  16. ATORVASTATIN [Concomitant]
     Active Substance: ATORVASTATIN
  17. LISINOPRIL. [Concomitant]
     Active Substance: LISINOPRIL
  18. INSULIN LISPRO [Concomitant]
     Active Substance: INSULIN LISPRO
  19. FLONASE [Concomitant]
     Active Substance: FLUTICASONE PROPIONATE
  20. MONUROL [Concomitant]
     Active Substance: FOSFOMYCIN TROMETHAMINE
  21. SIMETHICONE (DIMETHICONE) [Concomitant]
     Active Substance: DIMETHICONE
  22. MODAFINIL. [Concomitant]
     Active Substance: MODAFINIL
  23. TIZANIDINE. [Concomitant]
     Active Substance: TIZANIDINE
  24. MIRALAX [Concomitant]
     Active Substance: POLYETHYLENE GLYCOL 3350
  25. AMPYRA [Suspect]
     Active Substance: DALFAMPRIDINE
     Indication: MULTIPLE SCLEROSIS
     Route: 048
     Dates: start: 201006
  26. ANECREAM [Concomitant]
     Active Substance: LIDOCAINE
  27. CETIRIZINE [Concomitant]
     Active Substance: CETIRIZINE HYDROCHLORIDE

REACTIONS (7)
  - Haemoglobin decreased [None]
  - Pseudomonas test positive [None]
  - Urinary tract infection enterococcal [None]
  - Creatinine renal clearance decreased [None]
  - Therapy cessation [None]
  - White blood cells urine positive [None]
  - Urinary tract infection [None]

NARRATIVE: CASE EVENT DATE: 20170825
